FAERS Safety Report 15942702 (Version 2)
Quarter: 2020Q1

REPORT INFORMATION
  Report Type: Spontaneous
  Country: US (occurrence: US)
  Receive Date: 20190209
  Receipt Date: 20200310
  Transmission Date: 20200409
  Serious: Yes (Death, Hospitalization, Other)
  Sender: FDA-Public Use
  Company Number: US-ASTRAZENECA-2018SF66258

PATIENT
  Age: 28413 Day
  Sex: Female
  Weight: 90.7 kg

DRUGS (26)
  1. VELTASSA [Concomitant]
     Active Substance: PATIROMER
  2. VAGIFEM [Concomitant]
     Active Substance: ESTRADIOL
     Dates: start: 20080211
  3. NEXIUM [Suspect]
     Active Substance: ESOMEPRAZOLE MAGNESIUM
     Indication: GASTRIC ULCER
     Dosage: 40.0MG UNKNOWN
     Route: 048
     Dates: start: 20071219
  4. CLONIDINE. [Concomitant]
     Active Substance: CLONIDINE
  5. GLIPIZIDE. [Concomitant]
     Active Substance: GLIPIZIDE
  6. JANUVIA [Concomitant]
     Active Substance: SITAGLIPTIN PHOSPHATE
     Dates: start: 20071213
  7. ZYRTEC [Concomitant]
     Active Substance: CETIRIZINE HYDROCHLORIDE
     Dates: start: 20071213
  8. CEFDINIR. [Concomitant]
     Active Substance: CEFDINIR
     Dates: start: 20080124
  9. MECLIZINE HCL [Concomitant]
     Active Substance: MECLIZINE HYDROCHLORIDE
     Dates: start: 20080503
  10. DOXYCYCLINE HYCLATE. [Concomitant]
     Active Substance: DOXYCYCLINE HYCLATE
     Dates: start: 20090220
  11. MAGNESIUM [Concomitant]
     Active Substance: MAGNESIUM
  12. NEXIUM [Suspect]
     Active Substance: ESOMEPRAZOLE MAGNESIUM
     Indication: GASTRIC ULCER
     Route: 048
  13. AZITHROMYCIN ANHYDROUS. [Concomitant]
     Active Substance: AZITHROMYCIN ANHYDROUS
     Dates: start: 20071213
  14. FERSOL [Concomitant]
     Indication: HYPOTENSION
  15. HYDRALAZINE [Concomitant]
     Active Substance: HYDRALAZINE HYDROCHLORIDE
     Indication: BLOOD PRESSURE MEASUREMENT
  16. LISINOPRIL. [Concomitant]
     Active Substance: LISINOPRIL
     Dates: start: 20071229
  17. CHERATUSSIN AC [Concomitant]
     Active Substance: CODEINE PHOSPHATE\GUAIFENESIN
     Dates: start: 20071213
  18. DOXYCYCLINE HYCLATE. [Concomitant]
     Active Substance: DOXYCYCLINE HYCLATE
     Dates: start: 20090220
  19. LABETALOL [Concomitant]
     Active Substance: LABETALOL\LABETALOL HYDROCHLORIDE
     Indication: BLOOD PRESSURE MEASUREMENT
  20. CLINDAMYCIN HCL [Concomitant]
     Active Substance: CLINDAMYCIN HYDROCHLORIDE
     Dates: start: 20080503
  21. TYLENOL [Concomitant]
     Active Substance: ACETAMINOPHEN
     Indication: ARTHRITIS
  22. FUROSEMIDE. [Concomitant]
     Active Substance: FUROSEMIDE
     Dates: start: 20071213
  23. VI-Q-TUSS [Concomitant]
     Active Substance: GUAIFENESIN\HYDROCODONE BITARTRATE
     Dates: start: 20071225
  24. FLUTICASONE PROPIONATE. [Concomitant]
     Active Substance: FLUTICASONE PROPIONATE
     Dates: start: 20080209
  25. PROVENTIL HFA [Concomitant]
     Active Substance: ALBUTEROL SULFATE
     Dates: start: 20080210
  26. ACETAMINOPHEN CODEINE [Concomitant]
     Active Substance: ACETAMINOPHEN\CODEINE PHOSPHATE
     Indication: BLOOD PRESSURE MEASUREMENT
     Dates: start: 20090623

REACTIONS (6)
  - Renal failure [Unknown]
  - Renal injury [Unknown]
  - Nephrogenic anaemia [Unknown]
  - End stage renal disease [Fatal]
  - Chronic kidney disease [Unknown]
  - Rebound acid hypersecretion [Unknown]

NARRATIVE: CASE EVENT DATE: 20120806
